FAERS Safety Report 5455245-9 (Version None)
Quarter: 2007Q3

REPORT INFORMATION
  Report Type: 
  Country: None (occurrence: None)
  Receive Date: 20070918
  Receipt Date: 20070906
  Transmission Date: 20080115
  Serious: Yes (Other)
  Sender: FDA-Public Use
  Company Number: US-JNJFOC-20070901410

PATIENT
  Sex: Female
  Weight: 71.22 kg

DRUGS (7)
  1. FENTANYL TRANSDERMAL SYSTEM [Suspect]
     Indication: PAIN
     Route: 062
  2. SYNTHROID [Concomitant]
     Indication: HYPOTHYROIDISM
     Route: 048
  3. SOMA [Concomitant]
     Indication: PAIN
     Route: 048
  4. LORTAB [Concomitant]
     Indication: PAIN
     Route: 048
  5. TEGRETOL [Concomitant]
     Indication: CONVULSION
     Dosage: BEFORE DINNER
     Route: 048
  6. PLAQUENIL [Concomitant]
     Indication: ARTHRITIS
     Route: 048
  7. ZONEGRAN [Concomitant]
     Indication: CONVULSION
     Route: 048

REACTIONS (8)
  - DIARRHOEA [None]
  - DRUG EFFECT DECREASED [None]
  - FLUID RETENTION [None]
  - INSOMNIA [None]
  - NEUROPATHY [None]
  - ORAL DISCOMFORT [None]
  - PHARMACEUTICAL PRODUCT COMPLAINT [None]
  - RHINORRHOEA [None]
